FAERS Safety Report 18628216 (Version 1)
Quarter: 2020Q4

REPORT INFORMATION
  Report Type: Spontaneous
  Country: DK (occurrence: DK)
  Receive Date: 20201217
  Receipt Date: 20201217
  Transmission Date: 20210114
  Serious: Yes (Hospitalization)
  Sender: FDA-Public Use
  Company Number: DK-MYLANLABS-2020M1103241

PATIENT
  Age: 32 Year
  Sex: Female

DRUGS (6)
  1. ENOXAPARIN [Interacting]
     Active Substance: ENOXAPARIN
     Indication: PRODUCT USED FOR UNKNOWN INDICATION
     Route: 065
  2. BUTALBITAL [Suspect]
     Active Substance: BUTALBITAL
     Indication: PRODUCT USED FOR UNKNOWN INDICATION
     Route: 065
  3. CETIRIZINE [Suspect]
     Active Substance: CETIRIZINE HYDROCHLORIDE
     Indication: PRODUCT USED FOR UNKNOWN INDICATION
     Route: 065
  4. WARFARIN [Interacting]
     Active Substance: WARFARIN
     Indication: ANTICOAGULANT THERAPY
     Route: 065
  5. IBUPROFEN. [Interacting]
     Active Substance: IBUPROFEN
     Indication: PRODUCT USED FOR UNKNOWN INDICATION
     Route: 065
  6. PARACETAMOL [Interacting]
     Active Substance: ACETAMINOPHEN
     Indication: PRODUCT USED FOR UNKNOWN INDICATION
     Route: 065

REACTIONS (20)
  - Thrombocytopenia [Unknown]
  - Gastrooesophageal reflux disease [Unknown]
  - Pulmonary embolism [Unknown]
  - Drug hypersensitivity [Unknown]
  - Ecchymosis [Unknown]
  - Pain [Unknown]
  - Hypercoagulation [Unknown]
  - Dizziness [Unknown]
  - Pulmonary infarction [Unknown]
  - Drug interaction [Unknown]
  - Respiratory failure [Unknown]
  - Hypochromic anaemia [Unknown]
  - Cardiac disorder [Unknown]
  - Multiple injuries [Unknown]
  - Deep vein thrombosis [Unknown]
  - Migraine [Unknown]
  - Contusion [Unknown]
  - Maternal exposure during pregnancy [Recovered/Resolved]
  - Breast cyst [Unknown]
  - Ventricular hyperkinesia [Unknown]
